FAERS Safety Report 11086668 (Version 1)
Quarter: 2015Q2

REPORT INFORMATION
  Report Type: Spontaneous
  Country: US (occurrence: None)
  Receive Date: 20150501
  Receipt Date: 20150501
  Transmission Date: 20150821
  Serious: Yes (Other)
  Sender: FDA-Public Use
  Company Number: None

PATIENT
  Age: 39 Year
  Sex: Female

DRUGS (1)
  1. AVONEX [Suspect]
     Active Substance: INTERFERON BETA-1A
     Indication: MULTIPLE SCLEROSIS
     Dosage: INJECTABLE
     Route: 030
     Dates: start: 20141027

REACTIONS (3)
  - Papilloma viral infection [None]
  - Herpes zoster [None]
  - Immune system disorder [None]

NARRATIVE: CASE EVENT DATE: 20150430
